FAERS Safety Report 7677094-3 (Version None)
Quarter: 2011Q3

REPORT INFORMATION
  Report Type: 
  Country: None (occurrence: None)
  Receive Date: 20110811
  Receipt Date: 20110801
  Transmission Date: 20111222
  Serious: Yes (Hospitalization, Other)
  Sender: FDA-Public Use
  Company Number: US-JNJFOC-20080801333

PATIENT
  Sex: Female
  Weight: 48.8 kg

DRUGS (5)
  1. REMICADE [Suspect]
     Indication: INFLAMMATORY BOWEL DISEASE
     Route: 042
     Dates: start: 20070308
  2. CLINDOMYCIN [Concomitant]
  3. REMICADE [Suspect]
     Dosage: TOTAL 7 DOSES
     Route: 042
     Dates: start: 20071217
  4. METRONIDZOLE [Concomitant]
  5. CIPROFLOXACIN [Concomitant]

REACTIONS (2)
  - PELVIC ABSCESS [None]
  - ENTEROCUTANEOUS FISTULA [None]
